APPROVED DRUG PRODUCT: RIZATRIPTAN BENZOATE
Active Ingredient: RIZATRIPTAN BENZOATE
Strength: EQ 5MG BASE
Dosage Form/Route: TABLET;ORAL
Application: A077526 | Product #001 | TE Code: AB
Applicant: CHARTWELL RX SCIENCES LLC
Approved: Mar 26, 2013 | RLD: No | RS: No | Type: RX